FAERS Safety Report 23261692 (Version 3)
Quarter: 2023Q4

REPORT INFORMATION
  Report Type: Report from Study
  Country: JP (occurrence: JP)
  Receive Date: 20231205
  Receipt Date: 20231227
  Transmission Date: 20240110
  Serious: Yes (Hospitalization)
  Sender: FDA-Public Use
  Company Number: JP-INSMED-2023-02181-JPAA

PATIENT
  Sex: Female
  Weight: 41.1 kg

DRUGS (8)
  1. ARIKAYCE [Suspect]
     Active Substance: AMIKACIN
     Indication: Mycobacterium avium complex infection
     Dosage: 590 MILLIGRAM, QD
     Route: 055
     Dates: start: 20230601, end: 20230604
  2. ARIKAYCE [Suspect]
     Active Substance: AMIKACIN
     Dosage: 590 MILLIGRAM, QD
     Route: 055
     Dates: start: 20230616, end: 20230705
  3. ARIKAYCE [Suspect]
     Active Substance: AMIKACIN
     Dosage: 590 MILLIGRAM, QOD
     Route: 055
     Dates: start: 20230715
  4. CLARITHROMYCIN [Concomitant]
     Active Substance: CLARITHROMYCIN
     Indication: Mycobacterium avium complex infection
     Dosage: 400 MILLIGRAM
     Route: 065
     Dates: start: 20150912
  5. ETHAMBUTOL [Concomitant]
     Active Substance: ETHAMBUTOL HYDROCHLORIDE
     Indication: Mycobacterium avium complex infection
     Dosage: 500 MILLIGRAM
     Route: 065
     Dates: start: 20150912
  6. ADONA [Concomitant]
     Indication: Mycobacterium avium complex infection
     Dosage: 30 MILLIGRAM
     Route: 065
     Dates: start: 20230516
  7. TRANSAMIN [Concomitant]
     Active Substance: TRANEXAMIC ACID
     Indication: Mycobacterium avium complex infection
     Dosage: 750 MILLIGRAM
     Route: 065
     Dates: start: 20230408
  8. DEQUALINIUM CHLORIDE [Concomitant]
     Active Substance: DEQUALINIUM CHLORIDE
     Indication: Prophylaxis
     Dosage: 0.25 MILLIGRAM
     Route: 048
     Dates: start: 20230601

REACTIONS (8)
  - Hypoglycaemia [Recovered/Resolved]
  - Aphonia [Not Recovered/Not Resolved]
  - Productive cough [Unknown]
  - Dysphonia [Recovering/Resolving]
  - Oropharyngeal pain [Not Recovered/Not Resolved]
  - Intentional dose omission [Unknown]
  - Off label use [Unknown]
  - Drug ineffective [Unknown]

NARRATIVE: CASE EVENT DATE: 20230101
